FAERS Safety Report 23625142 (Version 6)
Quarter: 2025Q2

REPORT INFORMATION
  Report Type: Report from Study
  Country: CA (occurrence: CA)
  Receive Date: 20240313
  Receipt Date: 20250508
  Transmission Date: 20250717
  Serious: Yes (Hospitalization, Other)
  Sender: TAKEDA
  Company Number: CA-TAKEDA-2024TUS022753

PATIENT
  Sex: Female

DRUGS (9)
  1. VEDOLIZUMAB [Suspect]
     Active Substance: VEDOLIZUMAB
     Indication: Colitis ulcerative
  2. VEDOLIZUMAB [Suspect]
     Active Substance: VEDOLIZUMAB
  3. VEDOLIZUMAB [Suspect]
     Active Substance: VEDOLIZUMAB
  4. GLYBURIDE [Concomitant]
     Active Substance: GLYBURIDE
  5. FERROUS SULFATE [Concomitant]
     Active Substance: FERROUS SULFATE
  6. OLMESARTAN [Concomitant]
     Active Substance: OLMESARTAN
  7. OXAZEPAM [Concomitant]
     Active Substance: OXAZEPAM
  8. ZOPICLONE [Concomitant]
     Active Substance: ZOPICLONE
  9. MESALAMINE [Concomitant]
     Active Substance: MESALAMINE

REACTIONS (4)
  - Female genital tract fistula [Unknown]
  - Abscess intestinal [Recovered/Resolved]
  - Intestinal fistula [Unknown]
  - Gastritis [Unknown]
